FAERS Safety Report 9525256 (Version 2)
Quarter: 2014Q2

REPORT INFORMATION
  Report Type: Spontaneous
  Country: US (occurrence: None)
  Receive Date: 20130912
  Receipt Date: 20140408
  Transmission Date: 20141212
  Serious: Yes (Other)
  Sender: FDA-Public Use
  Company Number: 2013-US-000134

PATIENT
  Age: 41 Year
  Sex: Male

DRUGS (4)
  1. XYREM [Suspect]
     Indication: NARCOLEPSY
     Dates: start: 200809, end: 201108
  2. XYREM [Suspect]
     Indication: CATAPLEXY
     Dates: start: 200809, end: 201108
  3. PROVIGIL (MODAFINIL) [Suspect]
     Indication: PRODUCT USED FOR UNKNOWN INDICATION
  4. CORTICOSTEROID NOS [Suspect]
     Indication: PRODUCT USED FOR UNKNOWN INDICATION

REACTIONS (3)
  - Weight increased [None]
  - Lung disorder [None]
  - Pain [None]
